FAERS Safety Report 21063104 (Version 1)
Quarter: 2022Q3

REPORT INFORMATION
  Report Type: Other
  Country: DE (occurrence: None)
  Receive Date: 20220711
  Receipt Date: 20220711
  Transmission Date: 20221027
  Serious: No
  Sender: FDA-Public Use
  Company Number: DE-ROCHE-3135354

PATIENT
  Age: 33 Year
  Sex: Female
  Weight: 62 kg

DRUGS (17)
  1. OCRELIZUMAB [Suspect]
     Active Substance: OCRELIZUMAB
     Indication: Relapsing multiple sclerosis
     Dosage: ON 03/APR/2018, LAST DOSE ADMINISTERED.
     Route: 042
     Dates: start: 20180320
  2. OCRELIZUMAB [Suspect]
     Active Substance: OCRELIZUMAB
     Dosage: ON 11/DEC/2020, LAST DOSE OF DRUG ADMINISTERED.
     Route: 042
     Dates: start: 20180920
  3. CHOLECALCIFEROL [Concomitant]
     Active Substance: CHOLECALCIFEROL
     Indication: Vitamin D deficiency
     Route: 048
     Dates: start: 20160930, end: 20190401
  4. CHOLECALCIFEROL [Concomitant]
     Active Substance: CHOLECALCIFEROL
     Route: 048
     Dates: start: 202001
  5. EBASTINE [Concomitant]
     Active Substance: EBASTINE
     Route: 042
     Dates: start: 20180320, end: 20180322
  6. EBASTINE [Concomitant]
     Active Substance: EBASTINE
     Route: 042
     Dates: start: 20180402, end: 20180404
  7. EBASTINE [Concomitant]
     Active Substance: EBASTINE
     Route: 042
     Dates: start: 20180919, end: 20180921
  8. EBASTINE [Concomitant]
     Active Substance: EBASTINE
     Route: 042
     Dates: start: 20190407, end: 20190409
  9. RANITIDINE [Concomitant]
     Active Substance: RANITIDINE
     Route: 048
     Dates: start: 20180320, end: 20180322
  10. RANITIDINE [Concomitant]
     Active Substance: RANITIDINE
     Route: 048
     Dates: start: 20180402, end: 20180404
  11. RANITIDINE [Concomitant]
     Active Substance: RANITIDINE
     Route: 048
     Dates: start: 20180919, end: 20180921
  12. RANITIDINE [Concomitant]
     Active Substance: RANITIDINE
     Route: 048
     Dates: start: 20190407, end: 20190409
  13. PREDNISOLONE [Concomitant]
     Active Substance: PREDNISOLONE
     Route: 042
     Dates: start: 20180321, end: 20180321
  14. PREDNISOLONE [Concomitant]
     Active Substance: PREDNISOLONE
     Route: 042
     Dates: start: 20180403, end: 20180403
  15. PREDNISOLONE [Concomitant]
     Active Substance: PREDNISOLONE
     Route: 042
     Dates: start: 20180920, end: 20180920
  16. PREDNISOLONE [Concomitant]
     Active Substance: PREDNISOLONE
     Route: 042
     Dates: start: 20190408, end: 20190408
  17. FERRO-SANOL DUODENAL [Concomitant]
     Active Substance: FERROUS GLYCINE SULFATE
     Indication: Iron deficiency
     Dates: start: 20210414

REACTIONS (1)
  - COVID-19 [Recovered/Resolved]

NARRATIVE: CASE EVENT DATE: 20220101
